FAERS Safety Report 8927952 (Version 1)
Quarter: 2012Q4

REPORT INFORMATION
  Report Type: Spontaneous
  Country: US (occurrence: None)
  Receive Date: 20121121
  Receipt Date: 20121121
  Transmission Date: 20130627
  Serious: Yes (Death, Hospitalization, Other)
  Sender: FDA-Public Use
  Company Number: None

PATIENT
  Age: 67 Year
  Sex: Male
  Weight: 88.91 kg

DRUGS (2)
  1. LEVEMIR [Suspect]
     Route: 058
     Dates: start: 20120309, end: 20120504
  2. NOVOLOG [Suspect]
     Route: 058
     Dates: start: 20120708, end: 20120713

REACTIONS (11)
  - Asthenia [None]
  - Dysarthria [None]
  - Confusional state [None]
  - Urine output decreased [None]
  - Hallucination [None]
  - Hypopnoea [None]
  - Hypotension [None]
  - Loss of consciousness [None]
  - Restlessness [None]
  - Aphasia [None]
  - Bladder dilatation [None]
